FAERS Safety Report 25896092 (Version 1)
Quarter: 2025Q4

REPORT INFORMATION
  Report Type: Report from Study
  Country: DO (occurrence: DO)
  Receive Date: 20251008
  Receipt Date: 20251008
  Transmission Date: 20260118
  Serious: Yes (Hospitalization)
  Sender: ALEXION PHARMACEUTICALS
  Company Number: DO-AstraZeneca-CH-00964890A

PATIENT
  Sex: Male

DRUGS (1)
  1. SAPHNELO [Suspect]
     Active Substance: ANIFROLUMAB-FNIA

REACTIONS (3)
  - Pyrexia [Unknown]
  - Chest pain [Unknown]
  - Rash vesicular [Unknown]
